FAERS Safety Report 6535839-X (Version None)
Quarter: 2010Q1

REPORT INFORMATION
  Report Type: 
  Country: None (occurrence: None)
  Receive Date: 20100113
  Receipt Date: 20100104
  Transmission Date: 20100710
  Serious: Yes (Other)
  Sender: FDA-Public Use
  Company Number: US-JNJFOC-20091007125

PATIENT
  Sex: Male

DRUGS (3)
  1. NUCYNTA [Suspect]
     Indication: PAIN
     Route: 048
  2. NUCYNTA [Suspect]
     Route: 048
  3. NUCYNTA [Suspect]
     Route: 048

REACTIONS (3)
  - HALLUCINATION [None]
  - OVERDOSE [None]
  - SEDATION [None]
